FAERS Safety Report 6023539-4 (Version None)
Quarter: 2008Q4

REPORT INFORMATION
  Report Type: 
  Country: None (occurrence: None)
  Receive Date: 20081230
  Receipt Date: 20081223
  Transmission Date: 20090506
  Serious: Yes (Other)
  Sender: FDA-Public Use
  Company Number: PHHY2008BR11610

PATIENT
  Age: 50 Year
  Sex: Female

DRUGS (3)
  1. FORASEQ [Suspect]
     Indication: BRONCHITIS
     Dosage: 2 INHALATIONS DAILY ONE IN MORNING AND ONE AT NIGHT
     Dates: start: 20030301
  2. FORASEQ [Suspect]
     Dosage: 1 INHALATION DAILY AT NIGHT
  3. FORASEQ [Suspect]
     Dosage: 2 INHALATIONS DAILY

REACTIONS (9)
  - APHTHOUS STOMATITIS [None]
  - BURNING SENSATION [None]
  - HEPATITIS [None]
  - NERVOUSNESS [None]
  - OESOPHAGITIS [None]
  - PAIN [None]
  - PNEUMONIA [None]
  - PRODUCT QUALITY ISSUE [None]
  - ULCER [None]
